FAERS Safety Report 14524383 (Version 3)
Quarter: 2018Q2

REPORT INFORMATION
  Report Type: Spontaneous
  Country: US (occurrence: US)
  Receive Date: 20180213
  Receipt Date: 20180402
  Transmission Date: 20180711
  Serious: No
  Sender: FDA-Public Use
  Company Number: US-PFIZER INC-2018061806

PATIENT
  Age: 46 Year
  Sex: Female
  Weight: 90.7 kg

DRUGS (5)
  1. DEXTROAMPHETAMINE. [Concomitant]
     Active Substance: DEXTROAMPHETAMINE
     Indication: NARCOLEPSY
     Dosage: 5 MG, 2X/DAY (1ST WEEK 1 TABLET )
     Route: 048
  2. GENOTROPIN MQ [Suspect]
     Active Substance: SOMATROPIN
     Indication: HYPOPITUITARISM
  3. NUVIGIL [Concomitant]
     Active Substance: ARMODAFINIL
     Indication: NARCOLEPSY
     Dosage: 250 MG, 1X/DAY
     Route: 048
  4. DEXTROAMPHETAMINE. [Concomitant]
     Active Substance: DEXTROAMPHETAMINE
     Dosage: 10 MG, 2X/DAY (2 TABLETS BY MOUTH TWICE A DAY)
     Route: 048
  5. GENOTROPIN MQ [Suspect]
     Active Substance: SOMATROPIN
     Indication: HORMONE THERAPY
     Dosage: 0.6 MG, DAILY
     Route: 058
     Dates: start: 20180219

REACTIONS (7)
  - Intentional product use issue [Unknown]
  - Arthralgia [Unknown]
  - Feeling abnormal [Unknown]
  - Asthenia [Unknown]
  - Drug dose omission [Unknown]
  - Malaise [Unknown]
  - Influenza like illness [Unknown]

NARRATIVE: CASE EVENT DATE: 201803
